FAERS Safety Report 18355344 (Version 2)
Quarter: 2020Q4

REPORT INFORMATION
  Report Type: Spontaneous
  Country: US (occurrence: US)
  Receive Date: 20201007
  Receipt Date: 20201012
  Transmission Date: 20210114
  Serious: Yes (Other)
  Sender: FDA-Public Use
  Company Number: US-HIKMA PHARMACEUTICALS USA INC.-US-H14001-20-52224

PATIENT
  Age: 72 Year
  Sex: Male

DRUGS (5)
  1. IMMUNOGLOBULIN [Concomitant]
     Indication: MYASTHENIA GRAVIS
     Dosage: UNKNOWN
     Route: 042
  2. PREDNISONE. [Concomitant]
     Active Substance: PREDNISONE
     Indication: MYASTHENIA GRAVIS
     Dosage: UNKNOWN
     Route: 065
  3. HEPARIN [Suspect]
     Active Substance: HEPARIN SODIUM
     Indication: ANTICOAGULANT THERAPY
     Dosage: UNKNOWN
     Route: 041
  4. PYRIDOSTIGMINE [Concomitant]
     Active Substance: PYRIDOSTIGMINE
     Indication: MYASTHENIA GRAVIS
     Dosage: UNKNOWN
     Route: 065
  5. ELIQUIS [Suspect]
     Active Substance: APIXABAN
     Indication: ANTICOAGULANT THERAPY
     Route: 048

REACTIONS (4)
  - Haemoglobin decreased [Recovered/Resolved]
  - Thrombosis [Recovered/Resolved]
  - Haemorrhage [Recovered/Resolved]
  - Myiasis [Recovered/Resolved]
